FAERS Safety Report 13195821 (Version 3)
Quarter: 2017Q3

REPORT INFORMATION
  Report Type: Spontaneous
  Country: FR (occurrence: FR)
  Receive Date: 20170208
  Receipt Date: 20170914
  Transmission Date: 20171127
  Serious: Yes (Hospitalization, Other)
  Sender: FDA-Public Use
  Company Number: PHHY2017FR015221

PATIENT
  Age: 38 Year
  Sex: Male
  Weight: 110 kg

DRUGS (2)
  1. COSENTYX [Suspect]
     Active Substance: SECUKINUMAB
     Indication: PSORIASIS
     Dosage: 300 MG, QW
     Route: 058
     Dates: start: 20170120, end: 20170120
  2. COSENTYX [Suspect]
     Active Substance: SECUKINUMAB
     Dosage: 300 MG, QW
     Route: 058
     Dates: start: 20170127, end: 20170127

REACTIONS (13)
  - Pulmonary embolism [Recovering/Resolving]
  - Arthralgia [Recovered/Resolved]
  - Musculoskeletal chest pain [Recovering/Resolving]
  - Joint swelling [Recovered/Resolved]
  - Musculoskeletal pain [Recovered/Resolved]
  - Pain [Not Recovered/Not Resolved]
  - Peripheral vascular disorder [Unknown]
  - Pain [Recovering/Resolving]
  - Neck pain [Recovered/Resolved]
  - Insomnia [Not Recovered/Not Resolved]
  - Lung infection [Recovering/Resolving]
  - Poor quality sleep [Unknown]
  - Overweight [Unknown]

NARRATIVE: CASE EVENT DATE: 20170121
